FAERS Safety Report 7782103-7 (Version None)
Quarter: 2011Q3

REPORT INFORMATION
  Report Type: 
  Country: None (occurrence: None)
  Receive Date: 20110927
  Receipt Date: 20110916
  Transmission Date: 20111222
  Serious: Yes (Other)
  Sender: FDA-Public Use
  Company Number: US-ELI_LILLY_AND_COMPANY-US201109005940

PATIENT
  Sex: Male

DRUGS (2)
  1. HUMULIN 70/30 [Suspect]
     Indication: DIABETES MELLITUS
     Dosage: 20 U, UNKNOWN
     Dates: start: 20060101
  2. HUMULIN 70/30 [Suspect]
     Dosage: 20 U, UNKNOWN
     Dates: start: 20060101

REACTIONS (2)
  - RENAL FAILURE [None]
  - POLYURIA [None]
